FAERS Safety Report 8319966-2 (Version None)
Quarter: 2012Q2

REPORT INFORMATION
  Report Type: 
  Country: None (occurrence: None)
  Receive Date: 20120427
  Receipt Date: 20120417
  Transmission Date: 20120825
  Serious: Yes (Life-Threatening, Hospitalization)
  Sender: FDA-Public Use
  Company Number: DE-GILEAD-2012-0053996

PATIENT
  Age: 87 Year
  Sex: Female

DRUGS (4)
  1. RANOLAZINE [Suspect]
     Indication: CARDIAC FAILURE
  2. ASPIRIN [Concomitant]
     Dosage: 100 MG, QD
     Route: 048
  3. RANOLAZINE [Suspect]
     Indication: ANGINA PECTORIS
     Dosage: 750 MG, QD
     Route: 048
     Dates: start: 20120323
  4. MONO MACK [Concomitant]
     Route: 048

REACTIONS (1)
  - CARDIAC FAILURE CONGESTIVE [None]
